FAERS Safety Report 23519937 (Version 1)
Quarter: 2024Q1

REPORT INFORMATION
  Report Type: Spontaneous
  Country: CN (occurrence: CN)
  Receive Date: 20240213
  Receipt Date: 20240213
  Transmission Date: 20240410
  Serious: Yes (Hospitalization, Other)
  Sender: FDA-Public Use
  Company Number: CN-ABBOTT-2024A-1377442

PATIENT
  Age: 39 Year
  Sex: Male
  Weight: 60 kg

DRUGS (2)
  1. FENOFIBRATE [Suspect]
     Active Substance: FENOFIBRATE
     Indication: Hyperlipidaemia
     Dosage: LIPANTHYL(FENOFIBRATE CAPSULES)
     Route: 048
     Dates: start: 20240109, end: 20240129
  2. EBASTINE [Concomitant]
     Active Substance: EBASTINE
     Indication: Psoriasis
     Dosage: EBASTINE TABLETS
     Route: 048
     Dates: start: 20240109, end: 20240119

REACTIONS (1)
  - Hepatic function abnormal [Recovering/Resolving]

NARRATIVE: CASE EVENT DATE: 20240129
